FAERS Safety Report 7757474-8 (Version None)
Quarter: 2011Q3

REPORT INFORMATION
  Report Type: 
  Country: None (occurrence: None)
  Receive Date: 20110916
  Receipt Date: 20110914
  Transmission Date: 20111222
  Serious: Yes (Other)
  Sender: FDA-Public Use
  Company Number: JP-BRACCO-005210

PATIENT
  Age: 63 Year
  Sex: Male

DRUGS (3)
  1. IOPAMIDOL [Suspect]
     Indication: COMPUTERISED TOMOGRAM
     Route: 042
  2. IODINE [Interacting]
  3. IODINE [Suspect]
     Indication: RADIOTHERAPY
     Dosage: ADMINISTERED SIX DAYS PRIOR TO IOPAMIRON 370.

REACTIONS (1)
  - HYPERTENSIVE CRISIS [None]
